FAERS Safety Report 24334389 (Version 4)
Quarter: 2024Q4

REPORT INFORMATION
  Report Type: Spontaneous
  Country: US (occurrence: US)
  Receive Date: 20240918
  Receipt Date: 20241122
  Transmission Date: 20250115
  Serious: Yes (Other)
  Sender: AMGEN
  Company Number: US-PFIZER INC-202400257655

PATIENT
  Age: 62 Year
  Sex: Female

DRUGS (1)
  1. ENBREL [Suspect]
     Active Substance: ETANERCEPT
     Indication: Product used for unknown indication
     Dosage: UNK
     Route: 065

REACTIONS (4)
  - Postmenopausal haemorrhage [Unknown]
  - Therapeutic product effect decreased [Unknown]
  - Dry mouth [Unknown]
  - Parotid gland enlargement [Unknown]

NARRATIVE: CASE EVENT DATE: 20240101
